FAERS Safety Report 7571879-X (Version None)
Quarter: 2011Q2

REPORT INFORMATION
  Report Type: 
  Country: None (occurrence: None)
  Receive Date: 20110624
  Receipt Date: 20100603
  Transmission Date: 20111010
  Serious: No
  Sender: FDA-Public Use
  Company Number: A0865614A

PATIENT
  Age: 35 Year
  Sex: Female

DRUGS (2)
  1. VERAMYST [Suspect]
     Indication: SEASONAL ALLERGY
     Dosage: 2SPR PER DAY
     Route: 045
  2. NONE [Concomitant]

REACTIONS (1)
  - ARTHRITIS [None]
